FAERS Safety Report 12722998 (Version 5)
Quarter: 2016Q4

REPORT INFORMATION
  Report Type: Spontaneous
  Country: US (occurrence: US)
  Receive Date: 20160908
  Receipt Date: 20161117
  Transmission Date: 20170207
  Serious: Yes (Hospitalization, Other)
  Sender: FDA-Public Use
  Company Number: US-ROCHE-1827200

PATIENT
  Age: 73 Year
  Sex: Female
  Weight: 84.9 kg

DRUGS (2)
  1. ESBRIET [Suspect]
     Active Substance: PIRFENIDONE
     Indication: IDIOPATHIC PULMONARY FIBROSIS
     Route: 048
     Dates: start: 20160827
  2. ESBRIET [Suspect]
     Active Substance: PIRFENIDONE
     Route: 048
     Dates: start: 20160718, end: 20161115

REACTIONS (10)
  - Rash [Recovered/Resolved]
  - Urticaria [Recovered/Resolved]
  - Confusional state [Unknown]
  - Amnesia [Unknown]
  - Mood swings [Unknown]
  - Urinary tract infection [Unknown]
  - Dyspnoea [Unknown]
  - Asthenia [Unknown]
  - Fall [Unknown]
  - Fatigue [Unknown]

NARRATIVE: CASE EVENT DATE: 20160903
